FAERS Safety Report 4618558-6 (Version None)
Quarter: 2005Q1

REPORT INFORMATION
  Report Type: 
  Country: None (occurrence: None)
  Receive Date: 20050323
  Receipt Date: 20050310
  Transmission Date: 20050727
  Serious: Yes (Hospitalization, Other)
  Sender: FDA-Public Use
  Company Number: 2005042797

PATIENT
  Age: 55 Year
  Sex: Female

DRUGS (2)
  1. NEURONTIN [Suspect]
     Indication: EPILEPSY
     Dosage: 2400 MG (800 MG, 3 IN 1 D)
  2. LEVETIRACETAM [Concomitant]

REACTIONS (2)
  - CYTOLYTIC HEPATITIS [None]
  - INTRACRANIAL PRESSURE INCREASED [None]
